FAERS Safety Report 21417798 (Version 2)
Quarter: 2022Q4

REPORT INFORMATION
  Report Type: Spontaneous
  Country: US (occurrence: US)
  Receive Date: 20221006
  Receipt Date: 20221007
  Transmission Date: 20230113
  Serious: No
  Sender: FDA-Public Use
  Company Number: US-PFIZER INC-202201197986

PATIENT
  Age: 3 Year
  Sex: Male
  Weight: 10.9 kg

DRUGS (2)
  1. TOFACITINIB [Suspect]
     Active Substance: TOFACITINIB
     Indication: Lung disorder
     Dosage: 200 MG, SINGLE
     Route: 042
     Dates: start: 20220909, end: 20220909
  2. TOFACITINIB [Suspect]
     Active Substance: TOFACITINIB
     Dosage: 300 MG, SINGLE
     Route: 042
     Dates: start: 20220921, end: 20220921

REACTIONS (2)
  - Drug ineffective for unapproved indication [Unknown]
  - Off label use [Unknown]
